FAERS Safety Report 17730934 (Version 11)
Quarter: 2022Q1

REPORT INFORMATION
  Report Type: Report from Study
  Country: FR (occurrence: None)
  Receive Date: 20200430
  Receipt Date: 20220322
  Transmission Date: 20220423
  Serious: Yes (Hospitalization)
  Sender: FDA-Public Use
  Company Number: FR-ROCHE-2589441

PATIENT
  Age: 59 Year
  Sex: Female
  Weight: 51 kg

DRUGS (41)
  1. IPATASERTIB [Suspect]
     Active Substance: IPATASERTIB
     Indication: Breast cancer
     Dosage: DATE OF MOST RECENT DOSE OF  IPATASERTIB PRIOR TO AE ONSET 06/MAR/2020
     Route: 048
     Dates: start: 20191129
  2. ATEZOLIZUMAB [Suspect]
     Active Substance: ATEZOLIZUMAB
     Indication: Breast cancer
     Dosage: DATE OF MOST RECENT DOSE 840 MG OF ATEZOLIZUMAB PRIOR TO AE ONSET 07/APR/2020, AT 15.14
     Route: 041
     Dates: start: 20191129
  3. PACLITAXEL [Suspect]
     Active Substance: PACLITAXEL
     Indication: Breast cancer
     Dosage: DATE OF MOST RECENT DOSE 80 MG/M2 OF PACLITAXEL PRIOR TO AE ONSET 07/APR/2020 AT 16.44
     Route: 042
     Dates: start: 20191129
  4. PACLITAXEL [Suspect]
     Active Substance: PACLITAXEL
     Route: 065
     Dates: start: 20200624, end: 20200707
  5. LOPERAMIDE [Suspect]
     Active Substance: LOPERAMIDE
     Indication: Breast cancer
     Dosage: DOSE OF STUDY DRUG FIRST ADMINISTERED 2 MG?DATE OF MOST RECENT DOSE 840 MG OF LOPERAMIDE PRIOR TO AE
     Route: 048
     Dates: start: 20191203
  6. BISOPROLOL FUMARATE\HYDROCHLOROTHIAZIDE [Concomitant]
     Active Substance: BISOPROLOL FUMARATE\HYDROCHLOROTHIAZIDE
     Indication: Hypertension
     Route: 048
  7. SIMVASTATIN [Concomitant]
     Active Substance: SIMVASTATIN
     Indication: Hypercholesterolaemia
     Route: 048
  8. LEVOTHYROXINE [Concomitant]
     Active Substance: LEVOTHYROXINE
     Indication: Hypothyroidism
     Route: 048
     Dates: start: 201301
  9. IBUPROFEN [Concomitant]
     Active Substance: IBUPROFEN
     Route: 048
     Dates: start: 20191105
  10. POLARAMINE [Concomitant]
     Active Substance: DEXCHLORPHENIRAMINE MALEATE
     Route: 062
     Dates: start: 20191129, end: 20200707
  11. RANITIDINE HYDROCHLORIDE [Concomitant]
     Active Substance: RANITIDINE HYDROCHLORIDE
     Route: 042
     Dates: start: 20191129, end: 20200707
  12. METHYLPREDNISOLONE [Concomitant]
     Active Substance: METHYLPREDNISOLONE
     Route: 042
     Dates: start: 20191129, end: 20200607
  13. EXFORGE [Concomitant]
     Active Substance: AMLODIPINE BESYLATE\VALSARTAN
     Indication: Hypertension
     Route: 048
     Dates: start: 20191216
  14. CARBOXYMETHYLCELLULOSE SODIUM [Concomitant]
     Active Substance: CARBOXYMETHYLCELLULOSE SODIUM
     Dosage: 1 OTHER
     Route: 061
     Dates: start: 20200207, end: 20200927
  15. ERYTHROPOIETIN [Concomitant]
     Active Substance: ERYTHROPOIETIN
     Indication: Anaemia
     Route: 042
     Dates: start: 20200407, end: 20200507
  16. INNOHEP [Concomitant]
     Active Substance: TINZAPARIN SODIUM
     Indication: Phlebitis
     Route: 058
     Dates: start: 20200207, end: 20200624
  17. INNOHEP [Concomitant]
     Active Substance: TINZAPARIN SODIUM
     Route: 058
     Dates: start: 20200207, end: 20200624
  18. INNOHEP [Concomitant]
     Active Substance: TINZAPARIN SODIUM
     Route: 030
     Dates: start: 20200420, end: 20200421
  19. MORPHINE SULFATE [Concomitant]
     Active Substance: MORPHINE SULFATE
     Route: 048
     Dates: start: 20200420, end: 20200421
  20. SKENAN [Concomitant]
     Active Substance: MORPHINE SULFATE
     Route: 048
     Dates: start: 20200420, end: 20200421
  21. POTASSIUM CHLORIDE [Concomitant]
     Active Substance: POTASSIUM CHLORIDE
     Indication: Hyperkalaemia
     Route: 048
     Dates: start: 20200420, end: 20200420
  22. LAMALINE [Concomitant]
     Route: 048
     Dates: start: 20200221, end: 20200421
  23. DEXTROSE\POTASSIUM CHLORIDE\SODIUM CHLORIDE [Concomitant]
     Active Substance: DEXTROSE\POTASSIUM CHLORIDE\SODIUM CHLORIDE
     Dosage: 1 OTHER
     Route: 042
     Dates: start: 20200420, end: 20200420
  24. DOLIPRANE [Concomitant]
     Active Substance: ACETAMINOPHEN
     Route: 048
     Dates: start: 20200420, end: 20200421
  25. IRON [Concomitant]
     Active Substance: IRON
     Dosage: 100MG/5ML
     Route: 042
     Dates: start: 20200407, end: 20200407
  26. SIMVASTATIN [Concomitant]
     Active Substance: SIMVASTATIN
     Indication: Hypercholesterolaemia
     Route: 048
  27. CEFTRIAXONE SODIUM [Concomitant]
     Active Substance: CEFTRIAXONE SODIUM
     Indication: COVID-19
     Route: 048
     Dates: start: 20200430, end: 20200514
  28. NEFOPAM [Concomitant]
     Active Substance: NEFOPAM
     Route: 048
     Dates: start: 20200421, end: 20200421
  29. KETAMINE [Concomitant]
     Active Substance: KETAMINE
     Route: 048
     Dates: start: 20200427, end: 20200427
  30. GABAPENTIN [Concomitant]
     Active Substance: GABAPENTIN
     Route: 048
     Dates: start: 20200427, end: 20200625
  31. ABSTRAL [Concomitant]
     Active Substance: FENTANYL CITRATE
     Route: 048
     Dates: start: 20200426, end: 20200426
  32. OXYCODONE HYDROCHLORIDE [Concomitant]
     Active Substance: OXYCODONE HYDROCHLORIDE
     Route: 048
     Dates: start: 20200427, end: 20200427
  33. OXYCODONE HYDROCHLORIDE [Concomitant]
     Active Substance: OXYCODONE HYDROCHLORIDE
     Route: 048
     Dates: start: 20200519, end: 20200519
  34. LIDOCAINE [Concomitant]
     Active Substance: LIDOCAINE
     Route: 058
     Dates: start: 20200527, end: 20200625
  35. PHOCYTAN [Concomitant]
     Active Substance: .ALPHA.-GLUCOSE-1-PHOSPHATE
     Indication: Hypophosphataemia
     Dosage: 0.66 OTHER
     Route: 042
     Dates: start: 20200421, end: 20200421
  36. POLYETHYLENE GLYCOLS [Concomitant]
     Active Substance: POLYETHYLENE GLYCOLS
     Route: 048
     Dates: start: 20200504
  37. MAGNESIUM CHLORIDE [Concomitant]
     Active Substance: MAGNESIUM CHLORIDE
     Route: 042
     Dates: start: 20200423, end: 20200423
  38. AMLODIPINE BESYLATE [Concomitant]
     Active Substance: AMLODIPINE BESYLATE
     Indication: Hypertension
     Route: 048
     Dates: start: 20200420
  39. BISOPROLOL [Concomitant]
     Active Substance: BISOPROLOL
     Indication: Abdominal pain upper
     Route: 048
     Dates: start: 20200420
  40. BISOPROLOL [Concomitant]
     Active Substance: BISOPROLOL
     Indication: Nausea
  41. BISOPROLOL [Concomitant]
     Active Substance: BISOPROLOL
     Indication: Vomiting

REACTIONS (1)
  - General physical health deterioration [Recovering/Resolving]

NARRATIVE: CASE EVENT DATE: 20200420
